FAERS Safety Report 18883561 (Version 2)
Quarter: 2021Q1

REPORT INFORMATION
  Report Type: Spontaneous
  Country: ES (occurrence: ES)
  Receive Date: 20210212
  Receipt Date: 20210224
  Transmission Date: 20210420
  Serious: Yes (Other)
  Sender: FDA-Public Use
  Company Number: ES-BRISTOL-MYERS SQUIBB COMPANY-BMS-2021-005032

PATIENT
  Age: 62 Year
  Sex: Male

DRUGS (12)
  1. ZALDIAR [Concomitant]
     Active Substance: ACETAMINOPHEN\TRAMADOL HYDROCHLORIDE
     Indication: RHEUMATOID ARTHRITIS
     Dosage: 1 TAB (24 H)
     Route: 048
     Dates: start: 20140508
  2. ADIRO [Concomitant]
     Active Substance: ASPIRIN
     Indication: ANGINA PECTORIS
     Dosage: 100 MILLIGRAM (24H)
     Route: 048
     Dates: start: 20140228
  3. PANTOPRAZOLE [Concomitant]
     Active Substance: PANTOPRAZOLE
     Indication: ANGINA PECTORIS
     Dosage: 40 MILLIGRAM (24H)
     Route: 048
     Dates: start: 20120912
  4. METOTREXATE [Suspect]
     Active Substance: METHOTREXATE SODIUM
     Indication: PRODUCT USED FOR UNKNOWN INDICATION
     Route: 065
  5. PREDNISONE. [Concomitant]
     Active Substance: PREDNISONE
     Indication: RHEUMATOID ARTHRITIS
     Dosage: 5 MILLIGRAM (24H)
     Route: 048
     Dates: start: 20181105
  6. TRYPTIZOL [Concomitant]
     Active Substance: AMITRIPTYLINE HYDROCHLORIDE
     Indication: MYALGIA
     Dosage: 10 MILLIGRAM (24H)
     Route: 048
     Dates: start: 20180222
  7. ORENCIA [Suspect]
     Active Substance: ABATACEPT
     Indication: RHEUMATOID ARTHRITIS
     Dosage: 750 MILLIGRAM, Q4WK
     Route: 042
     Dates: start: 20121015
  8. OLUMIANT [Concomitant]
     Active Substance: BARICITINIB
     Indication: PRODUCT USED FOR UNKNOWN INDICATION
     Dosage: 4 MILLIGRAM (24H) (WITH PREDNISONE WITH FAILURE)
     Route: 065
     Dates: start: 201902
  9. ORENCIA [Suspect]
     Active Substance: ABATACEPT
     Dosage: 750 MILLIGRAM (EVERY 4?6 WEEKS)
     Route: 065
     Dates: start: 2014
  10. OSVICAL D [Concomitant]
     Indication: RHEUMATOID ARTHRITIS
     Dosage: UNK (1 SACHET 24H)
     Route: 048
     Dates: start: 20190530
  11. BISOPROLOL [Concomitant]
     Active Substance: BISOPROLOL
     Indication: ANGINA PECTORIS
     Dosage: 2.5 MILLIGRAM (24H)
     Route: 048
     Dates: start: 20120912
  12. ATORVASTATIN [Concomitant]
     Active Substance: ATORVASTATIN
     Indication: ANGINA PECTORIS
     Dosage: 40 MILLIGRAM (24H)
     Route: 048
     Dates: start: 20151110

REACTIONS (3)
  - Off label use [Unknown]
  - Hepatotoxicity [Unknown]
  - Wrong technique in product usage process [Unknown]

NARRATIVE: CASE EVENT DATE: 2014
